FAERS Safety Report 9735289 (Version 2)
Quarter: 2013Q4

REPORT INFORMATION
  Report Type: Spontaneous
  Country: FR (occurrence: FR)
  Receive Date: 20131206
  Receipt Date: 20131216
  Transmission Date: 20140711
  Serious: Yes (Life-Threatening, Hospitalization)
  Sender: FDA-Public Use
  Company Number: FR-PFIZER INC-2013345437

PATIENT
  Age: 23 Year
  Sex: Female

DRUGS (2)
  1. RHINADVIL MAUX DE GORGE TIXOCORTOL / CHLORHEXIDINE [Suspect]
     Dosage: UNK
     Route: 002
     Dates: start: 201311, end: 201311
  2. ANTADYS [Suspect]
     Dosage: UNK
     Route: 048
     Dates: start: 201311, end: 201311

REACTIONS (8)
  - Drug abuse [Unknown]
  - Gastric ulcer [Recovering/Resolving]
  - Renal failure acute [Recovering/Resolving]
  - Eating disorder [Unknown]
  - Gastritis [Unknown]
  - Anorexia and bulimia syndrome [Unknown]
  - Weight increased [Unknown]
  - Asthenia [Unknown]
